FAERS Safety Report 21886658 (Version 1)
Quarter: 2023Q1

REPORT INFORMATION
  Report Type: Spontaneous
  Country: US (occurrence: US)
  Receive Date: 20230119
  Receipt Date: 20230119
  Transmission Date: 20230417
  Serious: Yes (Life-Threatening, Hospitalization, Other)
  Sender: FDA-Public Use
  Company Number: US-PFIZER INC-202300026664

PATIENT
  Age: 70 Year
  Sex: Male
  Weight: 109.77 kg

DRUGS (2)
  1. XELJANZ XR [Suspect]
     Active Substance: TOFACITINIB CITRATE
     Indication: Rheumatoid arthritis
     Dosage: 11 MG, DAILY
     Dates: start: 2021, end: 20220310
  2. ENTRESTO [Concomitant]
     Active Substance: SACUBITRIL\VALSARTAN
     Indication: Cardiac failure
     Dosage: 24MG-26MG BID

REACTIONS (4)
  - Heart rate decreased [Recovering/Resolving]
  - Myocarditis [Recovered/Resolved]
  - Dementia [Unknown]
  - Endocarditis [Unknown]

NARRATIVE: CASE EVENT DATE: 20220301
